FAERS Safety Report 5428375-5 (Version None)
Quarter: 2007Q3

REPORT INFORMATION
  Report Type: 
  Country: None (occurrence: None)
  Receive Date: 20070731
  Receipt Date: 20070407
  Transmission Date: 20080115
  Serious: No
  Sender: FDA-Public Use
  Company Number: US200704002045

PATIENT
  Sex: Male

DRUGS (3)
  1. BYETTA [Suspect]
     Indication: DRUG USE FOR UNKNOWN INDICATION
     Dosage: 5 UNK, UNKNOWN, SUBCUTANEOUS ;
     Route: 058
     Dates: start: 20070101
  2. EXENATIDE [Concomitant]
     Route: 058
     Dates: start: 20070101
  3. BYETTA [Suspect]

REACTIONS (2)
  - ANOREXIA [None]
  - WEIGHT DECREASED [None]
